FAERS Safety Report 17531566 (Version 1)
Quarter: 2020Q1

REPORT INFORMATION
  Report Type: Spontaneous
  Country: US (occurrence: US)
  Receive Date: 20200311
  Receipt Date: 20200311
  Transmission Date: 20200409
  Serious: No
  Sender: FDA-Public Use
  Company Number: US-SA-2020SA060926

PATIENT
  Age: 49 Year
  Sex: Male
  Weight: 83.9 kg

DRUGS (10)
  1. BETAMETHASONE DIPROPIONATE. [Concomitant]
     Active Substance: BETAMETHASONE DIPROPIONATE
  2. CLOBETASOL [Concomitant]
     Active Substance: CLOBETASOL
  3. CELACYN [Concomitant]
  4. PROTOPIC [Concomitant]
     Active Substance: TACROLIMUS
  5. LOSARTAN POTASSIUM. [Concomitant]
     Active Substance: LOSARTAN POTASSIUM
  6. EUCRISA [Concomitant]
     Active Substance: CRISABOROLE
  7. DUPIXENT [Suspect]
     Active Substance: DUPILUMAB
     Indication: DERMATITIS ATOPIC
     Dosage: 300 MG, QOW
     Route: 058
     Dates: start: 20190901
  8. NASONEX [Concomitant]
     Active Substance: MOMETASONE FUROATE
  9. PREDNISONE. [Concomitant]
     Active Substance: PREDNISONE
  10. FLUTICASONE PROPIONATE. [Concomitant]
     Active Substance: FLUTICASONE PROPIONATE

REACTIONS (3)
  - Injection site bruising [Recovered/Resolved]
  - Pruritus [Unknown]
  - Rash [Unknown]

NARRATIVE: CASE EVENT DATE: 202002
